FAERS Safety Report 23046424 (Version 1)
Quarter: 2023Q4

REPORT INFORMATION
  Report Type: Spontaneous
  Country: CN (occurrence: CN)
  Receive Date: 20231009
  Receipt Date: 20231009
  Transmission Date: 20240109
  Serious: Yes (Hospitalization, Other)
  Sender: FDA-Public Use
  Company Number: CN-PFIZER INC-202300314680

PATIENT
  Age: 75 Year
  Sex: Male

DRUGS (1)
  1. ESTRAMUSTINE PHOSPHATE SODIUM [Suspect]
     Active Substance: ESTRAMUSTINE PHOSPHATE SODIUM
     Indication: Prostate cancer metastatic
     Dosage: 6 DF, 3X/DAY
     Route: 048
     Dates: start: 20230412, end: 20230923

REACTIONS (2)
  - Myelosuppression [Unknown]
  - Thrombocytopenia [Unknown]

NARRATIVE: CASE EVENT DATE: 20230822
